FAERS Safety Report 14563898 (Version 3)
Quarter: 2020Q3

REPORT INFORMATION
  Report Type: Spontaneous
  Country: GR (occurrence: GR)
  Receive Date: 20180222
  Receipt Date: 20180629
  Transmission Date: 20201104
  Serious: Yes (Other)
  Sender: FDA-Public Use
  Company Number: GR-MYLANLABS-2018M1011672

PATIENT
  Age: 81 Year
  Sex: Female

DRUGS (8)
  1. VANCOMYCIN [Suspect]
     Active Substance: VANCOMYCIN
     Indication: ENDOPHTHALMITIS
     Dosage: 0.1 ML (OF 10 MG/ML)
  2. DEXAMETHASONE. [Suspect]
     Active Substance: DEXAMETHASONE
     Indication: ENDOPHTHALMITIS
     Dosage: UNK
  3. AMIKACIN. [Suspect]
     Active Substance: AMIKACIN
     Indication: BLINDNESS
  4. DEXAMETHASONE. [Suspect]
     Active Substance: DEXAMETHASONE
     Indication: BLINDNESS
  5. XARELTO [Concomitant]
     Active Substance: RIVAROXABAN
     Indication: THROMBOSIS
     Dosage: UNK
  6. MOXIFLOXACIN. [Suspect]
     Active Substance: MOXIFLOXACIN
     Indication: BLINDNESS
  7. AMIKACIN. [Suspect]
     Active Substance: AMIKACIN
     Indication: ENDOPHTHALMITIS
     Dosage: 0.1 ML (OF 4 MG/ML)
  8. MOXIFLOXACIN. [Suspect]
     Active Substance: MOXIFLOXACIN
     Indication: ENDOPHTHALMITIS
     Dosage: UNK

REACTIONS (5)
  - Maculopathy [Unknown]
  - Retinal artery occlusion [Unknown]
  - Retinal haemorrhage [Unknown]
  - Corneal opacity [Unknown]
  - Retinal ischaemia [Unknown]
